FAERS Safety Report 17863485 (Version 1)
Quarter: 2020Q2

REPORT INFORMATION
  Report Type: Spontaneous
  Country: PT (occurrence: PT)
  Receive Date: 20200604
  Receipt Date: 20200604
  Transmission Date: 20200714
  Serious: Yes (Hospitalization)
  Sender: FDA-Public Use
  Company Number: NVSC2020PT025313

PATIENT
  Age: 69 Year
  Sex: Female

DRUGS (6)
  1. PAROXETINE. [Concomitant]
     Active Substance: PAROXETINE
     Indication: DEPRESSION
     Dosage: 20 MG, 1X/DAY
     Route: 065
  2. IDEBENONE [Concomitant]
     Active Substance: IDEBENONE
     Indication: DEPRESSION
     Dosage: 90 MG QD (45 MG, 2X/DAY)
     Route: 065
  3. ACETYLSALICYLIC ACID [Concomitant]
     Active Substance: ASPIRIN
     Indication: PRODUCT USED FOR UNKNOWN INDICATION
     Dosage: 100 MG, 1X/DAY
     Route: 065
  4. ATORVASTATIN CALCIUM. [Suspect]
     Active Substance: ATORVASTATIN CALCIUM
     Indication: PRODUCT USED FOR UNKNOWN INDICATION
     Dosage: 20 MG, QD (1X/DAY)
     Route: 048
  5. PERINDOPRIL/INDAPAMIDE [Concomitant]
     Active Substance: INDAPAMIDE\PERINDOPRIL
     Indication: PRODUCT USED FOR UNKNOWN INDICATION
     Dosage: 4/1,2 5MG 1X/DAY
     Route: 065
  6. METFORMIN [Concomitant]
     Active Substance: METFORMIN HYDROCHLORIDE
     Indication: PRODUCT USED FOR UNKNOWN INDICATION
     Dosage: 1000/50 MG, 2X/DAY
     Route: 065

REACTIONS (3)
  - Quadriparesis [Unknown]
  - Rhabdomyolysis [Unknown]
  - Myositis [Unknown]
